FAERS Safety Report 13600598 (Version 1)
Quarter: 2017Q2

REPORT INFORMATION
  Report Type: Spontaneous
  Country: US (occurrence: US)
  Receive Date: 20170531
  Receipt Date: 20170531
  Transmission Date: 20170830
  Serious: Yes (Disabling, Other)
  Sender: FDA-Public Use
  Company Number: None

PATIENT
  Age: 32 Year
  Sex: Female
  Weight: 103.5 kg

DRUGS (8)
  1. METFORMIN [Concomitant]
     Active Substance: METFORMIN HYDROCHLORIDE
  2. QVAR [Concomitant]
     Active Substance: BECLOMETHASONE DIPROPIONATE
  3. VITAMIN D [Concomitant]
     Active Substance: CHOLECALCIFEROL
  4. VITAMIN B12 [Concomitant]
     Active Substance: CYANOCOBALAMIN
  5. RHINOCORT [Suspect]
     Active Substance: BUDESONIDE
     Indication: RHINITIS ALLERGIC
     Dosage: OTHER STRENGTH:MCG;QUANTITY:60 SPRAY(S);OTHER ROUTE:NASAL INHALATION?
     Route: 045
     Dates: start: 20170519, end: 20170528
  6. RHINOCORT [Suspect]
     Active Substance: BUDESONIDE
     Indication: RHINITIS
     Dosage: OTHER STRENGTH:MCG;QUANTITY:60 SPRAY(S);OTHER ROUTE:NASAL INHALATION?
     Route: 045
     Dates: start: 20170519, end: 20170528
  7. LO MINASTRIN FE [Concomitant]
     Active Substance: ETHINYL ESTRADIOL\NORETHINDRONE ACETATE
  8. ALLEGRA [Concomitant]
     Active Substance: FEXOFENADINE HYDROCHLORIDE

REACTIONS (2)
  - Chest discomfort [None]
  - Panic attack [None]

NARRATIVE: CASE EVENT DATE: 20170526
